FAERS Safety Report 11052273 (Version 4)
Quarter: 2016Q1

REPORT INFORMATION
  Report Type: Report from Study
  Country: BR (occurrence: BR)
  Receive Date: 20150421
  Receipt Date: 20160324
  Transmission Date: 20160525
  Serious: Yes (Other)
  Sender: FDA-Public Use
  Company Number: PHHY2012BR112441

PATIENT
  Age: 46 Year
  Sex: Female
  Weight: 46 kg

DRUGS (4)
  1. CALCIUM [Concomitant]
     Active Substance: CALCIUM
     Indication: PRODUCT USED FOR UNKNOWN INDICATION
     Dosage: UNK
     Route: 065
  2. FOLIC ACID. [Concomitant]
     Active Substance: FOLIC ACID
     Indication: PRODUCT USED FOR UNKNOWN INDICATION
     Dosage: UNK UNK, QW3
     Route: 065
  3. HYDREA [Concomitant]
     Active Substance: HYDROXYUREA
     Indication: PRODUCT USED FOR UNKNOWN INDICATION
     Dosage: UNK
     Route: 065
  4. EXJADE [Suspect]
     Active Substance: DEFERASIROX
     Indication: SICKLE CELL ANAEMIA
     Dosage: 35 MG/KG, QD (3 DF OF 500 MG)
     Route: 048
     Dates: start: 20090101

REACTIONS (17)
  - Dysgeusia [Recovered/Resolved]
  - Diarrhoea [Recovered/Resolved]
  - Nausea [Recovered/Resolved]
  - Abdominal pain upper [Unknown]
  - Malaise [Unknown]
  - Blood iron abnormal [Not Recovered/Not Resolved]
  - Abdominal pain upper [Recovered/Resolved]
  - Nausea [Unknown]
  - Dyspepsia [Unknown]
  - Weight decreased [Recovering/Resolving]
  - Haematocrit abnormal [Not Recovered/Not Resolved]
  - Drug ineffective [Unknown]
  - Abdominal discomfort [Unknown]
  - Dysphagia [Recovering/Resolving]
  - Serum ferritin increased [Recovering/Resolving]
  - Fatigue [Recovering/Resolving]
  - Diarrhoea [Not Recovered/Not Resolved]

NARRATIVE: CASE EVENT DATE: 20141223
